FAERS Safety Report 6175012-0 (Version None)
Quarter: 2009Q2

REPORT INFORMATION
  Report Type: 
  Country: None (occurrence: None)
  Receive Date: 20090430
  Receipt Date: 20090421
  Transmission Date: 20091009
  Serious: Yes (Other)
  Sender: FDA-Public Use
  Company Number: PHHY2009JP14033

PATIENT

DRUGS (2)
  1. COMTAN [Suspect]
     Dosage: 600 MG
     Route: 048
  2. MADOPAR [Suspect]

REACTIONS (4)
  - DRUG LEVEL INCREASED [None]
  - PALPITATIONS [None]
  - PHAEOCHROMOCYTOMA [None]
  - SECONDARY HYPERTENSION [None]
